FAERS Safety Report 26022650 (Version 1)
Quarter: 2025Q4

REPORT INFORMATION
  Report Type: Report from Study
  Country: US (occurrence: None)
  Receive Date: 20251110
  Receipt Date: 20251110
  Transmission Date: 20260118
  Serious: Yes (Hospitalization, Other)
  Sender: UCB
  Company Number: US-UCBSA-2025070275

PATIENT
  Age: 66 Year

DRUGS (1)
  1. BIMEKIZUMAB [Suspect]
     Active Substance: BIMEKIZUMAB
     Indication: Psoriasis
     Dosage: 320 MILLIGRAM, EV 4 WEEKS

REACTIONS (4)
  - Cholecystectomy [Recovered/Resolved]
  - Perforation bile duct [Recovered/Resolved]
  - Psoriasis [Recovered/Resolved]
  - Intentional dose omission [Unknown]
